FAERS Safety Report 9262058 (Version 1)
Quarter: 2013Q2

REPORT INFORMATION
  Report Type: Spontaneous
  Country: AU (occurrence: AU)
  Receive Date: 20130429
  Receipt Date: 20130429
  Transmission Date: 20140414
  Serious: Yes (Life-Threatening)
  Sender: FDA-Public Use
  Company Number: AU-ABBOTT-13X-008-1082427-00

PATIENT
  Age: 38 Year
  Sex: Male

DRUGS (2)
  1. SODIUM VALPROATE [Suspect]
     Indication: PRODUCT USED FOR UNKNOWN INDICATION
     Route: 065
  2. CLOZARIL [Suspect]
     Indication: PRODUCT USED FOR UNKNOWN INDICATION
     Route: 065
     Dates: start: 20040209, end: 20130110

REACTIONS (7)
  - Consciousness fluctuating [Unknown]
  - Malaise [Unknown]
  - Mental impairment [Recovered/Resolved]
  - Drug ineffective [Unknown]
  - Haemoglobin decreased [Unknown]
  - Poisoning deliberate [Unknown]
  - Antipsychotic drug level increased [Unknown]
